FAERS Safety Report 7652684-2 (Version None)
Quarter: 2011Q3

REPORT INFORMATION
  Report Type: 
  Country: None (occurrence: None)
  Receive Date: 20110802
  Receipt Date: 20110802
  Transmission Date: 20111222
  Serious: No
  Sender: FDA-Public Use
  Company Number: None

PATIENT
  Sex: Female
  Weight: 90.7194 kg

DRUGS (1)
  1. VENLAFAXINE HCL EXTENDED-RELEASE [Suspect]
     Dosage: 225 1
     Dates: start: 20100601

REACTIONS (5)
  - PRODUCT SUBSTITUTION ISSUE [None]
  - NAUSEA [None]
  - MALAISE [None]
  - DIZZINESS [None]
  - TREMOR [None]
